FAERS Safety Report 17945289 (Version 1)
Quarter: 2020Q2

REPORT INFORMATION
  Report Type: Spontaneous
  Country: US (occurrence: US)
  Receive Date: 20200626
  Receipt Date: 20200626
  Transmission Date: 20200714
  Serious: Yes (Hospitalization)
  Sender: FDA-Public Use
  Company Number: US-QUAGEN-2020QUALIT00052

PATIENT
  Age: 47 Year
  Sex: Male

DRUGS (2)
  1. VALPROIC ACID. [Interacting]
     Active Substance: VALPROIC ACID
     Indication: AFFECT LABILITY
     Route: 065
  2. METHYLPHENIDATE HYDROCHLORIDE ORAL SOLUTION [Suspect]
     Active Substance: METHYLPHENIDATE HYDROCHLORIDE
     Indication: ATTENTION DEFICIT HYPERACTIVITY DISORDER
     Route: 065

REACTIONS (8)
  - Fall [Recovered/Resolved]
  - Agitation [Recovering/Resolving]
  - Restlessness [Recovering/Resolving]
  - Confabulation [Recovering/Resolving]
  - Paradoxical drug reaction [Recovering/Resolving]
  - Condition aggravated [Recovering/Resolving]
  - Anxiety [Recovering/Resolving]
  - Affect lability [Recovering/Resolving]
